FAERS Safety Report 12275865 (Version 1)
Quarter: 2016Q2

REPORT INFORMATION
  Report Type: Spontaneous
  Country: US (occurrence: US)
  Receive Date: 20160418
  Receipt Date: 20160418
  Transmission Date: 20160815
  Serious: Yes (Other)
  Sender: FDA-Public Use
  Company Number: US-BEH-2016061184

PATIENT
  Sex: Female
  Weight: 92 kg

DRUGS (19)
  1. AMPICLOX [Concomitant]
  2. AMBIEN [Concomitant]
     Active Substance: ZOLPIDEM TARTRATE
  3. ATIVAN [Concomitant]
     Active Substance: LORAZEPAM
  4. HIZENTRA [Suspect]
     Active Substance: HUMAN IMMUNOGLOBULIN G
     Indication: IMMUNODEFICIENCY COMMON VARIABLE
     Route: 058
     Dates: start: 20130325
  5. VITAMIN D [Concomitant]
     Active Substance: CHOLECALCIFEROL
  6. CYMBALTA [Concomitant]
     Active Substance: DULOXETINE HYDROCHLORIDE
  7. NASACORT [Concomitant]
     Active Substance: TRIAMCINOLONE ACETONIDE
  8. SEROQUEL [Concomitant]
     Active Substance: QUETIAPINE FUMARATE
  9. LMX [Concomitant]
     Active Substance: LIDOCAINE
  10. MELOXICAM. [Concomitant]
     Active Substance: MELOXICAM
  11. PRILOCAINE [Concomitant]
     Active Substance: PRILOCAINE
  12. ALBUTEROL. [Concomitant]
     Active Substance: ALBUTEROL
  13. PRILOSEC [Concomitant]
     Active Substance: OMEPRAZOLE MAGNESIUM
  14. DIPHENHYDRAMINE. [Concomitant]
     Active Substance: DIPHENHYDRAMINE
  15. LIDOCAINE. [Concomitant]
     Active Substance: LIDOCAINE
  16. LIPITOR [Concomitant]
     Active Substance: ATORVASTATIN CALCIUM
  17. VITAMIN C [Concomitant]
     Active Substance: ASCORBIC ACID
  18. EPIPEN [Concomitant]
     Active Substance: EPINEPHRINE
  19. LYRICA [Concomitant]
     Active Substance: PREGABALIN

REACTIONS (1)
  - Diverticulitis [Unknown]
